FAERS Safety Report 5074748-2 (Version None)
Quarter: 2006Q3

REPORT INFORMATION
  Report Type: 
  Country: None (occurrence: None)
  Receive Date: 20060804
  Receipt Date: 20060721
  Transmission Date: 20061208
  Serious: Yes (Hospitalization)
  Sender: FDA-Public Use
  Company Number: 227720

PATIENT
  Age: 56 Year
  Sex: Male

DRUGS (7)
  1. AVASTIN [Suspect]
     Indication: COLON CANCER METASTATIC
     Dosage: 5 MG/KG, DAYS 1+15, INTRAVENOUS
     Route: 042
     Dates: start: 20060522
  2. CAPECITABINE (CAPECITABINE) [Suspect]
     Indication: COLON CANCER METASTATIC
     Dosage: 750 MG/M2, BID, ORAL
     Route: 048
     Dates: start: 20060522
  3. OXALIPLATIN (OXALIPLATIN) [Suspect]
     Indication: COLON CANCER METASTATIC
  4. IMODIUM [Concomitant]
  5. LANSOPRAZOL (LANSOPRAZOLE) [Concomitant]
  6. PROCHLORPERAZINE MALEATE [Concomitant]
  7. LOVENOX [Concomitant]

REACTIONS (8)
  - CROHN'S DISEASE [None]
  - DEEP VEIN THROMBOSIS [None]
  - DEHYDRATION [None]
  - DRUG TOXICITY [None]
  - FEBRILE NEUTROPENIA [None]
  - HAEMOGLOBIN DECREASED [None]
  - MEGACOLON [None]
  - VOMITING [None]
